FAERS Safety Report 5622181-4 (Version None)
Quarter: 2008Q1

REPORT INFORMATION
  Report Type: 
  Country: None (occurrence: None)
  Receive Date: 20080206
  Receipt Date: 20080123
  Transmission Date: 20080703
  Serious: Yes (Disabling, Other)
  Sender: FDA-Public Use
  Company Number: TUK2007A00055

PATIENT
  Age: 63 Year
  Sex: Female

DRUGS (3)
  1. ACTOS [Suspect]
     Indication: GLYCOSYLATED HAEMOGLOBIN INCREASED
     Dosage: 30 MG
     Route: 048
     Dates: start: 20070326, end: 20070407
  2. INSULIN HUMALOG MIX 50 (INSULIN LISPRO) [Concomitant]
  3. LEVEMIR (INSULIN DETEMIR) [Concomitant]

REACTIONS (9)
  - ASCITES [None]
  - CARDIAC FAILURE [None]
  - CREPITATIONS [None]
  - DYSPNOEA [None]
  - FLUID RETENTION [None]
  - HEPATOMEGALY [None]
  - OEDEMA PERIPHERAL [None]
  - RASH [None]
  - WEIGHT INCREASED [None]
